FAERS Safety Report 16069993 (Version 1)
Quarter: 2019Q1

REPORT INFORMATION
  Report Type: Spontaneous
  Country: MA (occurrence: MA)
  Receive Date: 20190314
  Receipt Date: 20190314
  Transmission Date: 20190418
  Serious: Yes (Other)
  Sender: FDA-Public Use
  Company Number: MA-LUPIN PHARMACEUTICALS INC.-2019-01376

PATIENT
  Age: 62 Year
  Sex: Male

DRUGS (1)
  1. CIPROFLOXACIN. [Suspect]
     Active Substance: CIPROFLOXACIN
     Indication: POSTOPERATIVE CARE
     Dosage: UNK (EYE DROPS)
     Route: 047

REACTIONS (3)
  - Corneal deposits [Recovered/Resolved]
  - Ulcerative keratitis [Recovered/Resolved]
  - Corneal opacity [Not Recovered/Not Resolved]
